FAERS Safety Report 4515184-4 (Version None)
Quarter: 2004Q4

REPORT INFORMATION
  Report Type: 
  Country: None (occurrence: None)
  Receive Date: 20041201
  Receipt Date: 20041119
  Transmission Date: 20050328
  Serious: Yes (Death)
  Sender: FDA-Public Use
  Company Number: JPKYO-S-20040045

PATIENT
  Age: 71 Year
  Sex: Male

DRUGS (2)
  1. NAVELBINE [Suspect]
     Dosage: 25MGM2 CYCLIC
     Route: 042
     Dates: start: 20041026, end: 20041102
  2. CISPLATIN [Suspect]

REACTIONS (1)
  - FEBRILE NEUTROPENIA [None]
